FAERS Safety Report 8491837-0 (Version None)
Quarter: 2012Q3

REPORT INFORMATION
  Report Type: 
  Country: None (occurrence: None)
  Receive Date: 20120706
  Receipt Date: 20110627
  Transmission Date: 20120928
  Serious: No
  Sender: FDA-Public Use
  Company Number: US-GLAXOSMITHKLINE-A0933247A

PATIENT
  Age: 73 Year
  Sex: Female

DRUGS (14)
  1. LIPITOR [Concomitant]
  2. NITROGLYCERIN [Concomitant]
  3. DOXYCYCLINE [Concomitant]
  4. PROAIR HFA [Concomitant]
  5. PACERONE [Concomitant]
  6. FLOVENT [Suspect]
     Dosage: 1PUFF TWICE PER DAY
     Route: 055
     Dates: start: 20110301
  7. ASPIRIN [Concomitant]
  8. PLAVIX [Concomitant]
  9. LEVOTHYROXINE SODIUM [Concomitant]
  10. CARVEDILOL [Concomitant]
  11. PROZAC [Concomitant]
  12. ADVAIR DISKUS 100/50 [Suspect]
     Dosage: 1PUFF PER DAY
     Route: 055
  13. WARFARIN SODIUM [Concomitant]
  14. ASCORBIC ACID [Concomitant]

REACTIONS (4)
  - DYSPHONIA [None]
  - DRUG INEFFECTIVE [None]
  - PRODUCT QUALITY ISSUE [None]
  - DYSPNOEA [None]
